FAERS Safety Report 6502340-9 (Version None)
Quarter: 2009Q4

REPORT INFORMATION
  Report Type: 
  Country: None (occurrence: None)
  Receive Date: 20091206
  Receipt Date: 20091117
  Transmission Date: 20100525
  Serious: Yes (Congenital Anomaly)
  Sender: FDA-Public Use
  Company Number: B0608854A

PATIENT
  Sex: 0

DRUGS (2)
  1. CIMETIDINE [Suspect]
     Indication: DYSPEPSIA
     Dosage: TRANSPLACENTARY
     Route: 064
  2. ANTACID (FORMULATION UNKNOWN) [Suspect]
     Indication: DYSPEPSIA
     Dosage: TRANSPLACENTARY

REACTIONS (4)
  - ANAL ATRESIA [None]
  - MATERNAL DRUGS AFFECTING FOETUS [None]
  - PREMATURE BABY [None]
  - RECTAL STENOSIS [None]
